FAERS Safety Report 5313866-8 (Version None)
Quarter: 2007Q2

REPORT INFORMATION
  Report Type: 
  Country: None (occurrence: None)
  Receive Date: 20070501
  Receipt Date: 20070420
  Transmission Date: 20071010
  Serious: Yes (Death, Hospitalization)
  Sender: FDA-Public Use
  Company Number: PL-JNJFOC-20061105949

PATIENT
  Sex: Female
  Weight: 75 kg

DRUGS (4)
  1. CAELYX [Suspect]
     Indication: OVARIAN CANCER RECURRENT
     Route: 042
  2. TRABECTEDIN [Suspect]
     Indication: OVARIAN CANCER RECURRENT
  3. LIPOHEP [Concomitant]
     Indication: THROMBOSIS
  4. LIPOHEP [Concomitant]
     Indication: OEDEMA

REACTIONS (8)
  - ABDOMINAL PAIN [None]
  - ASCITES [None]
  - ASTHENIA [None]
  - DEHYDRATION [None]
  - DYSPNOEA [None]
  - PALMAR-PLANTAR ERYTHRODYSAESTHESIA SYNDROME [None]
  - STOMATITIS [None]
  - UPPER GASTROINTESTINAL HAEMORRHAGE [None]
